FAERS Safety Report 8935203 (Version 1)
Quarter: 2012Q4

REPORT INFORMATION
  Report Type: 
  Country: US (occurrence: US)
  Receive Date: 20121129
  Receipt Date: 20121129
  Transmission Date: 20130627
  Serious: No
  Sender: FDA-Public Use
  Company Number: US-ASTRAZENECA-2012SE87059

PATIENT
  Age: 54 Year
  Sex: Female
  Weight: 99.8 kg

DRUGS (4)
  1. NEXIUM [Suspect]
     Indication: GASTROOESOPHAGEAL REFLUX DISEASE
     Route: 048
     Dates: start: 2010
  2. AMLODIPINE [Concomitant]
     Indication: HYPERTENSION
  3. HYDROCHLORTHYAZIDE [Concomitant]
     Indication: HYPERTENSION
  4. FOSINOPRIL [Concomitant]
     Indication: HYPERTENSION

REACTIONS (4)
  - Dysphagia [Not Recovered/Not Resolved]
  - Upper gastrointestinal haemorrhage [Not Recovered/Not Resolved]
  - Sensation of foreign body [Unknown]
  - Intentional drug misuse [Unknown]
